FAERS Safety Report 7746963-8 (Version None)
Quarter: 2011Q3

REPORT INFORMATION
  Report Type: 
  Country: None (occurrence: None)
  Receive Date: 20110913
  Receipt Date: 20110901
  Transmission Date: 20111222
  Serious: Yes (Hospitalization)
  Sender: FDA-Public Use
  Company Number: PHHO2011SE14902

PATIENT

DRUGS (10)
  1. SINEMET [Concomitant]
     Dosage: 125 MG, X6
     Route: 048
     Dates: start: 19860101
  2. ASPIRIN [Concomitant]
     Dosage: 320 MG, QD
     Route: 048
     Dates: start: 20060101
  3. ELDEPRYL [Concomitant]
     Dosage: UNK
     Route: 048
     Dates: start: 19900101
  4. SIMVASTATIN [Concomitant]
     Dosage: 20 MG, QD
     Route: 048
     Dates: start: 20060101
  5. LETROZOLE [Suspect]
     Indication: BREAST CANCER
     Dosage: 2.5 MG, QD
     Route: 048
     Dates: start: 20110526, end: 20110716
  6. MADOPARK QUICK [Concomitant]
     Dosage: 62.5 MG, X6
     Route: 048
     Dates: start: 19860101
  7. ALVEDON [Concomitant]
     Dosage: 1 G, QID
     Route: 048
     Dates: start: 20010101
  8. GABAPENTIN [Concomitant]
     Dosage: 200 MG, TID
     Route: 048
     Dates: start: 20101029
  9. BISOPROLOL FUMARATE [Concomitant]
     Dosage: 10 MG, QD
     Route: 048
     Dates: start: 20060101
  10. IMDUR [Concomitant]
     Dosage: 90 MG, QD
     Route: 048
     Dates: start: 20060101

REACTIONS (1)
  - GASTRITIS HAEMORRHAGIC [None]
